FAERS Safety Report 7344968-2 (Version None)
Quarter: 2011Q1

REPORT INFORMATION
  Report Type: 
  Country: None (occurrence: None)
  Receive Date: 20110310
  Receipt Date: 20110302
  Transmission Date: 20110831
  Serious: Yes (Hospitalization)
  Sender: FDA-Public Use
  Company Number: A0886636A

PATIENT
  Age: 66 Year
  Sex: Female

DRUGS (1)
  1. AVANDIA [Suspect]
     Indication: DIABETES MELLITUS
     Dosage: 4MG TWO TIMES PER WEEK
     Route: 048
     Dates: start: 20060101, end: 20090524

REACTIONS (4)
  - CORONARY ARTERY BYPASS [None]
  - CARDIAC OPERATION [None]
  - MYOCARDIAL INFARCTION [None]
  - HEART VALVE REPLACEMENT [None]
